FAERS Safety Report 6669134-5 (Version None)
Quarter: 2010Q2

REPORT INFORMATION
  Report Type: 
  Country: None (occurrence: None)
  Receive Date: 20100406
  Receipt Date: 20100401
  Transmission Date: 20101027
  Serious: Yes (Death)
  Sender: FDA-Public Use
  Company Number: CA-CELGENEUS-028-21880-10040169

PATIENT
  Sex: Female

DRUGS (3)
  1. REVLIMID [Suspect]
     Indication: MULTIPLE MYELOMA
     Route: 048
     Dates: start: 20090811
  2. REVLIMID [Suspect]
     Route: 048
     Dates: start: 20081223, end: 20090301
  3. REVLIMID [Suspect]
     Route: 048
     Dates: start: 20090318, end: 20090801

REACTIONS (4)
  - DEATH [None]
  - HAEMORRHOIDAL HAEMORRHAGE [None]
  - NEUTROPENIA [None]
  - THROMBOCYTOPENIA [None]
